FAERS Safety Report 6947235-1 (Version None)
Quarter: 2010Q3

REPORT INFORMATION
  Report Type: 
  Country: None (occurrence: None)
  Receive Date: 20100825
  Receipt Date: 20100809
  Transmission Date: 20110219
  Serious: Yes (Hospitalization)
  Sender: FDA-Public Use
  Company Number: DSA_43711_2010

PATIENT
  Age: 86 Year
  Sex: Male

DRUGS (6)
  1. ENALAPRIL MALEATE [Suspect]
     Indication: HYPERTENSION
     Dosage: (DF ORAL)
     Route: 048
     Dates: start: 20091001, end: 20091205
  2. ACETAMINOPHEN [Concomitant]
  3. ASPIRIN [Concomitant]
  4. MADOPARK [Concomitant]
  5. SIMVASTATIN [Concomitant]
  6. INOLAXOL /00561901/ [Concomitant]

REACTIONS (1)
  - SYNCOPE [None]
